FAERS Safety Report 6465537-2 (Version None)
Quarter: 2009Q4

REPORT INFORMATION
  Report Type: 
  Country: None (occurrence: None)
  Receive Date: 20091124
  Receipt Date: 20091113
  Transmission Date: 20100525
  Serious: Yes (Other)
  Sender: FDA-Public Use
  Company Number: 2009AL007317

PATIENT
  Age: 62 Year
  Sex: Male

DRUGS (3)
  1. FEVERALL [Suspect]
  2. RISPERDAL [Concomitant]
  3. CHLORPROMAZINE [Concomitant]

REACTIONS (4)
  - DECREASED APPETITE [None]
  - OVERDOSE [None]
  - VOMITING [None]
  - WEIGHT DECREASED [None]
